FAERS Safety Report 5654257-X (Version None)
Quarter: 2008Q1

REPORT INFORMATION
  Report Type: 
  Country: None (occurrence: None)
  Receive Date: 20080201
  Receipt Date: 20051130
  Transmission Date: 20080703
  Serious: No
  Sender: FDA-Public Use
  Company Number: 20084546

PATIENT
  Sex: Male

DRUGS (1)
  1. LIORESAL [Suspect]
     Indication: MUSCLE SPASTICITY
     Dosage: MCG, DAILY, INTRATHECAL
     Route: 037

REACTIONS (2)
  - INSOMNIA [None]
  - VOMITING [None]
